FAERS Safety Report 25432351 (Version 1)
Quarter: 2025Q2

REPORT INFORMATION
  Report Type: Spontaneous
  Country: IT (occurrence: IT)
  Receive Date: 20250613
  Receipt Date: 20250613
  Transmission Date: 20250717
  Serious: Yes (Hospitalization, Other)
  Sender: CELLTRION
  Company Number: None

PATIENT

DRUGS (1)
  1. YUFLYMA [Suspect]
     Active Substance: ADALIMUMAB-AATY
     Indication: Rheumatoid arthritis
     Route: 058
     Dates: start: 202405, end: 202412

REACTIONS (4)
  - Rheumatoid arthritis [Not Recovered/Not Resolved]
  - Pneumonia [Not Recovered/Not Resolved]
  - Urinary tract infection [Not Recovered/Not Resolved]
  - Tooth infection [Not Recovered/Not Resolved]

NARRATIVE: CASE EVENT DATE: 20240701
